FAERS Safety Report 4963080-0 (Version None)
Quarter: 2006Q2

REPORT INFORMATION
  Report Type: 
  Country: None (occurrence: None)
  Receive Date: 20060405
  Receipt Date: 20051228
  Transmission Date: 20061013
  Serious: Yes (Other)
  Sender: FDA-Public Use
  Company Number: JP-JPN-A20053238

PATIENT
  Age: 25 Year
  Sex: Female

DRUGS (3)
  1. PAXIL [Suspect]
     Indication: PANIC DISORDER
     Dosage: 20MG PER DAY
     Route: 048
     Dates: start: 19980801, end: 20001001
  2. PAXIL [Suspect]
     Dosage: 20MG PER DAY
     Route: 048
     Dates: start: 20010601
  3. MEILAX [Concomitant]
     Indication: TENSION
     Dosage: 2MG PER DAY
     Route: 048
     Dates: start: 20031030

REACTIONS (6)
  - ABORTION SPONTANEOUS [None]
  - ABORTION THREATENED [None]
  - DRUG EXPOSURE DURING PREGNANCY [None]
  - NAUSEA [None]
  - NORMAL DELIVERY [None]
  - PREGNANCY [None]
